FAERS Safety Report 22681469 (Version 2)
Quarter: 2024Q2

REPORT INFORMATION
  Report Type: Spontaneous
  Country: US (occurrence: US)
  Receive Date: 20230707
  Receipt Date: 20240521
  Transmission Date: 20240716
  Serious: Yes (Hospitalization, Other)
  Sender: FDA-Public Use
  Company Number: US-MLMSERVICE-20230619-4355249-1

PATIENT

DRUGS (1)
  1. PREDNISONE [Suspect]
     Active Substance: PREDNISONE
     Indication: Infectious mononucleosis
     Dosage: 20 MG
     Route: 065

REACTIONS (4)
  - Encephalitis [Unknown]
  - Encephalopathy [Unknown]
  - Mania [Unknown]
  - Epstein-Barr virus infection [Unknown]
